FAERS Safety Report 5614043-3 (Version None)
Quarter: 2008Q1

REPORT INFORMATION
  Report Type: 
  Country: None (occurrence: None)
  Receive Date: 20080205
  Receipt Date: 20080124
  Transmission Date: 20080703
  Serious: Yes (Other)
  Sender: FDA-Public Use
  Company Number: GB-ROCHE-543233

PATIENT
  Age: 58 Year
  Sex: Female
  Weight: 106.1 kg

DRUGS (2)
  1. ORLISTAT [Suspect]
     Indication: OBESITY
     Dosage: DRUG STOPPED JUST AFTER XMAS.
     Route: 048
     Dates: start: 20071016, end: 20071026
  2. METFORMIN HCL [Concomitant]
     Route: 048

REACTIONS (1)
  - NEOPLASM MALIGNANT [None]
